FAERS Safety Report 12326761 (Version 1)
Quarter: 2016Q2

REPORT INFORMATION
  Report Type: Spontaneous
  Country: DK (occurrence: DK)
  Receive Date: 20160503
  Receipt Date: 20160503
  Transmission Date: 20160815
  Serious: Yes (Hospitalization)
  Sender: FDA-Public Use
  Company Number: DK-TEVA-655730ACC

PATIENT
  Age: 76 Year
  Sex: Female

DRUGS (5)
  1. OLANZAPINE ^TEVA^ [Suspect]
     Active Substance: OLANZAPINE
     Indication: BIPOLAR DISORDER
     Dosage: 1 TABLET IN THE MORNING, 2 TABLETS IN THE EVENING, STRENGTH: 2.5 MG
     Route: 048
     Dates: end: 20160216
  2. LITHIUM. [Concomitant]
     Active Substance: LITHIUM
     Indication: BIPOLAR DISORDER
  3. PAMOL [Concomitant]
     Active Substance: ACETAMINOPHEN
     Indication: PAIN
  4. OLANZAPIN ^ACTAVIS^ [Suspect]
     Active Substance: OLANZAPINE
     Indication: BIPOLAR DISORDER
     Dosage: 1 TABLET IN THE MORNING, 2 TABLETS IN THE EVENING, STRENGTH: 2.5 MG
     Route: 048
     Dates: end: 20160216
  5. DOLOL [Concomitant]
     Active Substance: TRAMADOL
     Indication: PAIN
     Dates: start: 20160101, end: 20160122

REACTIONS (8)
  - Constipation [Recovered/Resolved]
  - Resting tremor [Recovering/Resolving]
  - Gait disturbance [Recovering/Resolving]
  - Fall [Recovered/Resolved]
  - Vomiting [Recovered/Resolved]
  - Musculoskeletal stiffness [Recovering/Resolving]
  - Nausea [Recovered/Resolved]
  - Dehydration [None]

NARRATIVE: CASE EVENT DATE: 201601
